FAERS Safety Report 4676495-5 (Version None)
Quarter: 2005Q2

REPORT INFORMATION
  Report Type: 
  Country: None (occurrence: None)
  Receive Date: 20050527
  Receipt Date: 20050516
  Transmission Date: 20051028
  Serious: Yes (Hospitalization, Other)
  Sender: FDA-Public Use
  Company Number: JP-JNJFOC-20050504878

PATIENT
  Age: 68 Year
  Sex: Male

DRUGS (2)
  1. RISPERDAL [Suspect]
     Indication: PSYCHIATRIC SYMPTOM
     Dosage: PRN
     Route: 049
  2. ZOPICLONE [Concomitant]
     Dosage: PRN

REACTIONS (2)
  - BACK PAIN [None]
  - RHABDOMYOLYSIS [None]
